FAERS Safety Report 5771440-3 (Version None)
Quarter: 2008Q2

REPORT INFORMATION
  Report Type: 
  Country: None (occurrence: None)
  Receive Date: 20080610
  Receipt Date: 20080526
  Transmission Date: 20081010
  Serious: Yes (Other)
  Sender: FDA-Public Use
  Company Number: ENT 2008-0078

PATIENT
  Age: 85 Year
  Sex: Female

DRUGS (5)
  1. ENTACAPONE [Suspect]
     Indication: TREMOR
  2. AMIODARONE HCL [Suspect]
     Indication: ATRIAL FIBRILLATION
  3. ALPRAZOLAM [Suspect]
  4. CYPROHEPTADINE HCL [Suspect]
  5. CARBIDOPA AND LEVODOPA [Suspect]

REACTIONS (18)
  - AFFECT LABILITY [None]
  - AMNESIA [None]
  - CONDITION AGGRAVATED [None]
  - CONFUSIONAL STATE [None]
  - DELIRIUM [None]
  - FAILURE TO THRIVE [None]
  - FATIGUE [None]
  - GAIT DISTURBANCE [None]
  - HALLUCINATION [None]
  - INSOMNIA [None]
  - MALAISE [None]
  - MINI MENTAL STATUS EXAMINATION ABNORMAL [None]
  - NIGHTMARE [None]
  - PARKINSONISM [None]
  - SOMNOLENCE [None]
  - SPEECH DISORDER [None]
  - TREMOR [None]
  - WEIGHT DECREASED [None]
